FAERS Safety Report 23822580 (Version 2)
Quarter: 2024Q2

REPORT INFORMATION
  Report Type: Spontaneous
  Country: US (occurrence: US)
  Receive Date: 20240506
  Receipt Date: 20240628
  Transmission Date: 20240716
  Serious: Yes (Hospitalization, Other)
  Sender: FDA-Public Use
  Company Number: US-BRISTOL-MYERS SQUIBB COMPANY-2024-068694

PATIENT
  Age: 82 Year
  Sex: Female

DRUGS (1)
  1. REVLIMID [Suspect]
     Active Substance: LENALIDOMIDE
     Indication: Plasma cell myeloma
     Dosage: QD FOR 7 DAYS ON THEN 7 DAYS OF
     Route: 048

REACTIONS (4)
  - Cholelithiasis [Unknown]
  - Pancreatolithiasis [Unknown]
  - Off label use [Unknown]
  - Product dose omission issue [Unknown]
